FAERS Safety Report 9963922 (Version 3)
Quarter: 2014Q4

REPORT INFORMATION
  Report Type: Spontaneous
  Country: FR (occurrence: FR)
  Receive Date: 20140305
  Receipt Date: 20141125
  Transmission Date: 20150529
  Serious: Yes (Hospitalization)
  Sender: FDA-Public Use
  Company Number: FR-PFIZER INC-2014059269

PATIENT
  Age: 39 Year
  Sex: Male

DRUGS (2)
  1. LYRICA [Suspect]
     Active Substance: PREGABALIN
     Indication: SYRINGOMYELIA
     Dosage: 50 MG, 2X/DAY
     Route: 048
     Dates: end: 20141105
  2. LIORESAL [Suspect]
     Active Substance: BACLOFEN
     Indication: SYRINGOMYELIA
     Dosage: 30 MG, 3X/DAY
     Route: 048

REACTIONS (5)
  - Portal hypertension [Not Recovered/Not Resolved]
  - Thrombocytopenia [Not Recovered/Not Resolved]
  - Portal fibrosis [Not Recovered/Not Resolved]
  - Haemolysis [Not Recovered/Not Resolved]
  - Splenomegaly [Not Recovered/Not Resolved]

NARRATIVE: CASE EVENT DATE: 20061030
